FAERS Safety Report 5294747-5 (Version None)
Quarter: 2007Q2

REPORT INFORMATION
  Report Type: 
  Country: None (occurrence: None)
  Receive Date: 20070409
  Receipt Date: 20070409
  Transmission Date: 20071010
  Serious: Yes (Other)
  Sender: FDA-Public Use
  Company Number: None

PATIENT
  Sex: Male

DRUGS (3)
  1. REVLIMID [Suspect]
     Indication: MULTIPLE MYELOMA
     Dosage: 25MG  DAILY FOR 21 DAYS  PO
     Route: 048
  2. COZAAR [Concomitant]
  3. DEXAMETHASONE [Concomitant]

REACTIONS (1)
  - NEUTROPENIA [None]
